FAERS Safety Report 9699855 (Version 2)
Quarter: 2013Q4

REPORT INFORMATION
  Report Type: Spontaneous
  Country: US (occurrence: US)
  Receive Date: 20131121
  Receipt Date: 20131204
  Transmission Date: 20140711
  Serious: Yes (Death, Hospitalization, Other)
  Sender: FDA-Public Use
  Company Number: US-BAXTER-2013BAX045237

PATIENT
  Sex: Male

DRUGS (1)
  1. DIANEAL LOW CALCIUM [Suspect]
     Indication: PERITONEAL DIALYSIS
     Route: 033
     Dates: end: 20131113

REACTIONS (7)
  - Death [Fatal]
  - Fall [Recovered/Resolved]
  - Abasia [Recovering/Resolving]
  - Asthenia [Recovering/Resolving]
  - Hepatic cancer [Recovering/Resolving]
  - Lung neoplasm malignant [Recovering/Resolving]
  - Colon cancer [Recovering/Resolving]
